FAERS Safety Report 7906061-7 (Version None)
Quarter: 2011Q4

REPORT INFORMATION
  Report Type: 
  Country: None (occurrence: None)
  Receive Date: 20111110
  Receipt Date: 20111110
  Transmission Date: 20120403
  Serious: No
  Sender: FDA-Public Use
  Company Number: None

PATIENT
  Age: 20 Year
  Sex: Female
  Weight: 58.97 kg

DRUGS (2)
  1. PROCHLORPERAZINE EDISYLATE INJ [Concomitant]
     Dosage: 5 MG
     Route: 042
     Dates: start: 20110811, end: 20110811
  2. PROCHLORPERAZINE EDISYLATE INJ [Suspect]
     Indication: NAUSEA
     Dosage: 5 MG
     Route: 042
     Dates: start: 20110811, end: 20110811

REACTIONS (4)
  - TARDIVE DYSKINESIA [None]
  - VISION BLURRED [None]
  - NEUROLEPTIC MALIGNANT SYNDROME [None]
  - MYDRIASIS [None]
